FAERS Safety Report 8761838 (Version 2)
Quarter: 2012Q4

REPORT INFORMATION
  Report Type: Spontaneous
  Country: US (occurrence: None)
  Receive Date: 20120823
  Receipt Date: 20120905
  Transmission Date: 20130627
  Serious: Yes (Other)
  Sender: FDA-Public Use
  Company Number: PI-07753

PATIENT
  Sex: Female

DRUGS (1)
  1. LORAPREP (2%CHG/70%IPA)FREPP [Suspect]
     Indication: THERAPEUTIC SKIN CARE TOPICAL
     Route: 061
     Dates: start: 20120729

REACTIONS (4)
  - Application site erosion [None]
  - Application site irritation [None]
  - Application site pain [None]
  - Product contamination physical [None]
